FAERS Safety Report 14623871 (Version 1)
Quarter: 2018Q1

REPORT INFORMATION
  Report Type: Spontaneous
  Country: US (occurrence: US)
  Receive Date: 20180309
  Receipt Date: 20180309
  Transmission Date: 20180509
  Serious: Yes (Hospitalization)
  Sender: FDA-Public Use
  Company Number: None

PATIENT
  Age: 70 Year
  Sex: Male
  Weight: 69.26 kg

DRUGS (1)
  1. NAPROXEN. [Suspect]
     Active Substance: NAPROXEN
     Indication: PAIN
     Route: 048
     Dates: start: 20160926, end: 20170621

REACTIONS (9)
  - Gastric haemorrhage [None]
  - Gastroduodenitis [None]
  - Hiatus hernia [None]
  - Gastroduodenal ulcer [None]
  - Peptic ulcer [None]
  - Gastrointestinal haemorrhage [None]
  - Oesophagitis [None]
  - Haematemesis [None]
  - Anaemia [None]

NARRATIVE: CASE EVENT DATE: 20170627
